FAERS Safety Report 12067462 (Version 3)
Quarter: 2016Q2

REPORT INFORMATION
  Report Type: Spontaneous
  Country: AU (occurrence: AU)
  Receive Date: 20160211
  Receipt Date: 20160429
  Transmission Date: 20160815
  Serious: Yes (Hospitalization)
  Sender: FDA-Public Use
  Company Number: AU-ASTELLAS-2016US004789

PATIENT
  Age: 7 Decade
  Sex: Female

DRUGS (1)
  1. BETMIGA [Suspect]
     Active Substance: MIRABEGRON
     Indication: HYPERTONIC BLADDER
     Dosage: 25 MG DAILY DOSE, UNKNOWN FREQ.
     Route: 065

REACTIONS (6)
  - Urosepsis [Unknown]
  - Hypotension [Unknown]
  - Malaise [Unknown]
  - Pyelonephritis [Unknown]
  - Chills [Unknown]
  - Functional gastrointestinal disorder [Unknown]

NARRATIVE: CASE EVENT DATE: 201509
